FAERS Safety Report 21988107 (Version 2)
Quarter: 2023Q1

REPORT INFORMATION
  Report Type: Spontaneous
  Country: FR (occurrence: FR)
  Receive Date: 20230214
  Receipt Date: 20230222
  Transmission Date: 20230417
  Serious: Yes (Hospitalization, Other)
  Sender: FDA-Public Use
  Company Number: None

PATIENT
  Age: 37 Year
  Sex: Female

DRUGS (3)
  1. MYCOPHENOLATE MOFETIL [Suspect]
     Active Substance: MYCOPHENOLATE MOFETIL
     Indication: Immunosuppressant drug therapy
     Dosage: UNK
     Route: 065
     Dates: end: 2020
  2. TACROLIMUS [Suspect]
     Active Substance: TACROLIMUS
     Indication: Immunosuppressant drug therapy
     Dosage: UNK
     Route: 065
     Dates: end: 2020
  3. PREDNISONE [Suspect]
     Active Substance: PREDNISONE
     Indication: Immunosuppressant drug therapy
     Dosage: UNK
     Route: 065

REACTIONS (15)
  - Splenomegaly [Unknown]
  - Pleural effusion [Unknown]
  - Ascites [Unknown]
  - Enteritis infectious [Unknown]
  - Erythema nodosum [Unknown]
  - Atypical mycobacterial infection [Unknown]
  - Hepatomegaly [Unknown]
  - Neutropenia [Unknown]
  - Immune reconstitution inflammatory syndrome [Recovered/Resolved]
  - Adenocarcinoma of colon [Unknown]
  - Anaemia [Unknown]
  - Condition aggravated [Unknown]
  - Lymphadenopathy [Unknown]
  - Diarrhoea [Recovered/Resolved]
  - Adenomatous polyposis coli [Unknown]

NARRATIVE: CASE EVENT DATE: 20200101
